FAERS Safety Report 7383621-6 (Version None)
Quarter: 2011Q1

REPORT INFORMATION
  Report Type: 
  Country: None (occurrence: None)
  Receive Date: 20110330
  Receipt Date: 20110315
  Transmission Date: 20110831
  Serious: Yes (Other)
  Sender: FDA-Public Use
  Company Number: FR-GENENTECH-315371

PATIENT
  Sex: Female
  Weight: 53 kg

DRUGS (6)
  1. SYMBICORT [Concomitant]
     Indication: PRODUCT USED FOR UNKNOWN INDICATION
     Dosage: UNK
  2. VENTOLIN [Concomitant]
     Indication: PRODUCT USED FOR UNKNOWN INDICATION
  3. SINGULAIR [Concomitant]
     Indication: PRODUCT USED FOR UNKNOWN INDICATION
  4. XOLAIR [Suspect]
     Indication: ASTHMA
     Dosage: 225 MG, Q2W
     Route: 058
     Dates: start: 20110201
  5. XOLAIR [Suspect]
     Dosage: 225 MG, Q2W
     Route: 058
     Dates: start: 20110306
  6. NASACORT [Concomitant]
     Indication: PRODUCT USED FOR UNKNOWN INDICATION

REACTIONS (10)
  - HEADACHE [None]
  - DYSPHAGIA [None]
  - GOITRE [None]
  - OEDEMA PERIPHERAL [None]
  - URTICARIA [None]
  - OEDEMA [None]
  - DYSPNOEA [None]
  - ANAPHYLACTIC REACTION [None]
  - SWELLING FACE [None]
  - ODYNOPHAGIA [None]
